FAERS Safety Report 7582923-8 (Version None)
Quarter: 2011Q2

REPORT INFORMATION
  Report Type: 
  Country: None (occurrence: None)
  Receive Date: 20110527
  Receipt Date: 20101103
  Transmission Date: 20111010
  Serious: Yes (Hospitalization, Other)
  Sender: FDA-Public Use
  Company Number: US201009004229

PATIENT
  Sex: Female

DRUGS (4)
  1. BYETTA [Suspect]
     Indication: TYPE 2 DIABETES MELLITUS
     Dosage: 5 U, SUBCUTANEOUS
     Route: 058
     Dates: end: 20100814
  2. CRESTIR (ROSUVASTATIN CALCIUM) [Concomitant]
  3. NIASPAN [Concomitant]
  4. ASPIRIN [Concomitant]

REACTIONS (1)
  - PANCREATITIS ACUTE [None]
